FAERS Safety Report 25686075 (Version 3)
Quarter: 2025Q3

REPORT INFORMATION
  Report Type: Spontaneous
  Country: EU (occurrence: EU)
  Receive Date: 20250815
  Receipt Date: 20250901
  Transmission Date: 20251020
  Serious: Yes (Hospitalization, Other)
  Sender: AUROBINDO
  Company Number: EU-ACRAF SpA-2024-035143

PATIENT
  Age: 78 Year
  Sex: Male

DRUGS (9)
  1. QUETIAPINE [Suspect]
     Active Substance: QUETIAPINE
     Indication: Product used for unknown indication
     Route: 065
  2. LAMOTRIGINE [Suspect]
     Active Substance: LAMOTRIGINE
     Indication: Product used for unknown indication
     Route: 065
  3. CENOBAMATE [Suspect]
     Active Substance: CENOBAMATE
     Indication: Epilepsy
     Dosage: 150 MILLIGRAM, UNK
     Route: 048
     Dates: start: 20240612
  4. CENOBAMATE [Suspect]
     Active Substance: CENOBAMATE
     Dosage: 50 MILLIGRAM, UNK
     Route: 048
     Dates: start: 20240712
  5. CENOBAMATE [Suspect]
     Active Substance: CENOBAMATE
     Dosage: 100 MILLIGRAM, UNK
     Route: 048
  6. CENOBAMATE [Suspect]
     Active Substance: CENOBAMATE
     Dosage: 175 MILLIGRAM, UNK
     Route: 048
  7. VIMPAT [Suspect]
     Active Substance: LACOSAMIDE
     Indication: Product used for unknown indication
     Route: 065
  8. VIMPAT [Suspect]
     Active Substance: LACOSAMIDE
     Route: 065
  9. OPICAPONE [Suspect]
     Active Substance: OPICAPONE
     Indication: Parkinson^s disease
     Route: 065

REACTIONS (12)
  - Pneumonia [Not Recovered/Not Resolved]
  - Toxicity to various agents [Unknown]
  - Clumsiness [Not Recovered/Not Resolved]
  - Therapy change [Recovered/Resolved]
  - Feeling abnormal [Not Recovered/Not Resolved]
  - Somnolence [Recovered/Resolved]
  - Walking disability [Not Recovered/Not Resolved]
  - Increased dose administered [Unknown]
  - Off label use [Not Recovered/Not Resolved]
  - Product regimen confusion [Recovered/Resolved]
  - Wrong technique in product usage process [Recovered/Resolved]
  - Product dose omission issue [Unknown]

NARRATIVE: CASE EVENT DATE: 20240706
